FAERS Safety Report 6062470-5 (Version None)
Quarter: 2009Q1

REPORT INFORMATION
  Report Type: 
  Country: None (occurrence: None)
  Receive Date: 20090202
  Receipt Date: 20090202
  Transmission Date: 20090719
  Serious: Yes (Other)
  Sender: FDA-Public Use
  Company Number: None

PATIENT
  Sex: Male
  Weight: 65 kg

DRUGS (10)
  1. LISINOPRIL [Suspect]
     Dosage: 5MG TABLET 5 MG QD ORAL
     Route: 048
     Dates: start: 20080626, end: 20090202
  2. ALBUTEROL [Concomitant]
  3. ASMANEX TWISTHALER (MOMETASONE FURATE INHALER) [Concomitant]
  4. FORADIL AEROLIZER (FORMOTEROL FUMARATE INHALATION POWDER) [Concomitant]
  5. GLYBURIDE [Concomitant]
  6. MULTIVITAMIN THERAPEUTIC (THERAPEUTIC MULTIVITAMINS) [Concomitant]
  7. NIFEDIPINE [Concomitant]
  8. OMEPRAZOLE [Concomitant]
  9. SIMVASTATIN [Concomitant]
  10. TERAZOSIN HCL [Concomitant]

REACTIONS (1)
  - ANGIOEDEMA [None]
